FAERS Safety Report 18363019 (Version 2)
Quarter: 2020Q4

REPORT INFORMATION
  Report Type: Spontaneous
  Country: US (occurrence: US)
  Receive Date: 20201009
  Receipt Date: 20201019
  Transmission Date: 20210114
  Serious: No
  Sender: FDA-Public Use
  Company Number: NVSC2020US272586

PATIENT
  Age: 42 Year
  Sex: Female

DRUGS (1)
  1. MAYZENT [Suspect]
     Active Substance: SIPONIMOD
     Indication: MULTIPLE SCLEROSIS
     Dosage: 2 MG, QD
     Route: 048
     Dates: start: 20200716, end: 20200819

REACTIONS (7)
  - Dizziness [Recovering/Resolving]
  - Pain [Recovering/Resolving]
  - Palpitations [Recovering/Resolving]
  - Diarrhoea [Recovering/Resolving]
  - Furuncle [Recovering/Resolving]
  - Chest discomfort [Recovering/Resolving]
  - Anxiety [Recovering/Resolving]

NARRATIVE: CASE EVENT DATE: 20200718
